FAERS Safety Report 15974610 (Version 1)
Quarter: 2019Q1

REPORT INFORMATION
  Report Type: Spontaneous
  Country: JP (occurrence: JP)
  Receive Date: 20190218
  Receipt Date: 20190218
  Transmission Date: 20190418
  Serious: Yes (Hospitalization, Other)
  Sender: FDA-Public Use
  Company Number: JP-ALEMBIC PHARMACUETICALS LIMITED-2019SCAL000084

PATIENT

DRUGS (1)
  1. METRONIDAZOLE. [Suspect]
     Active Substance: METRONIDAZOLE
     Indication: CLOSTRIDIUM DIFFICILE COLITIS
     Dosage: UNK

REACTIONS (7)
  - Disorientation [Recovering/Resolving]
  - Dysarthria [Recovering/Resolving]
  - Coma scale abnormal [Recovering/Resolving]
  - Gaze palsy [Recovering/Resolving]
  - Epilepsy [Recovering/Resolving]
  - Muscular weakness [Recovering/Resolving]
  - Toxic encephalopathy [Recovering/Resolving]
